FAERS Safety Report 12303826 (Version 1)
Quarter: 2016Q2

REPORT INFORMATION
  Report Type: Spontaneous
  Country: US (occurrence: None)
  Receive Date: 20160425
  Receipt Date: 20160425
  Transmission Date: 20160815
  Serious: Yes (Other)
  Sender: FDA-Public Use
  Company Number: None

PATIENT
  Age: 40 Year
  Sex: Female
  Weight: 67.13 kg

DRUGS (6)
  1. VITA-FUSION WOMEN^S VITAMINS [Concomitant]
  2. CRANBERRY SUPPLEMENTS [Concomitant]
  3. NATURE VALLEY PROBIOTIC [Concomitant]
  4. FISH OIL [Concomitant]
     Active Substance: FISH OIL
  5. FLONASE [Suspect]
     Active Substance: FLUTICASONE PROPIONATE
     Indication: MULTIPLE ALLERGIES
     Dates: start: 20150410, end: 20150415
  6. ORTHO TRI CYCLEN [Suspect]
     Active Substance: ETHINYL ESTRADIOL\NORGESTIMATE

REACTIONS (2)
  - Weight increased [None]
  - Metrorrhagia [None]

NARRATIVE: CASE EVENT DATE: 20160415
